FAERS Safety Report 8250278-1 (Version None)
Quarter: 2012Q2

REPORT INFORMATION
  Report Type: 
  Country: None (occurrence: None)
  Receive Date: 20120402
  Receipt Date: 20120323
  Transmission Date: 20120825
  Serious: Yes (Hospitalization)
  Sender: FDA-Public Use
  Company Number: US-BAYER-2012-030008

PATIENT
  Age: 37 Year
  Sex: Female

DRUGS (11)
  1. EMERGEN-C [Concomitant]
  2. DILAUDID [Concomitant]
     Indication: PAIN IN EXTREMITY
  3. PREDNISONE TAB [Concomitant]
     Indication: IRITIS
     Dosage: 2 DROPS
     Route: 061
  4. B12-VITAMIN [Concomitant]
  5. YASMIN [Suspect]
  6. DROSPIRENONE AND ETHINYL ESTRADIOL [Suspect]
  7. NAPROXEN [Concomitant]
  8. DOCUSATE [Concomitant]
  9. NORCO [Concomitant]
  10. YAZ [Suspect]
  11. PHENTERMINE [Concomitant]
     Indication: WEIGHT DECREASED
     Dosage: 37.5 MG, QD
     Route: 048

REACTIONS (1)
  - DEEP VEIN THROMBOSIS [None]
